FAERS Safety Report 8309063-4 (Version None)
Quarter: 2012Q2

REPORT INFORMATION
  Report Type: 
  Country: None (occurrence: None)
  Receive Date: 20120424
  Receipt Date: 20120412
  Transmission Date: 20120825
  Serious: Yes (Other)
  Sender: FDA-Public Use
  Company Number: CA-ROCHE-1060204

PATIENT
  Sex: Male

DRUGS (1)
  1. XOLAIR [Suspect]
     Indication: ASTHMA
     Dosage: MOST RECENT DOSE ON 09/JUL/2009
     Route: 058
     Dates: start: 20051024

REACTIONS (3)
  - FRACTURE [None]
  - ARTHRALGIA [None]
  - RENAL PAIN [None]
